FAERS Safety Report 15965963 (Version 4)
Quarter: 2019Q2

REPORT INFORMATION
  Report Type: Spontaneous
  Country: US (occurrence: US)
  Receive Date: 20190215
  Receipt Date: 20190416
  Transmission Date: 20190711
  Serious: No
  Sender: FDA-Public Use
  Company Number: US-PFIZER INC-2019067480

PATIENT
  Age: 59 Year
  Sex: Male

DRUGS (3)
  1. SOMAVERT [Suspect]
     Active Substance: PEGVISOMANT
     Indication: ACROMEGALY
     Dosage: 15 MG THREE TIMES PER WEEK
     Dates: start: 2009
  2. SOMAVERT [Suspect]
     Active Substance: PEGVISOMANT
     Dosage: 15 MG, 4 TIMES PER WEEK
     Route: 058
     Dates: start: 201812
  3. SOMAVERT [Suspect]
     Active Substance: PEGVISOMANT
     Dosage: 15 MG, 4 TIMES PER WEEK
     Route: 058
     Dates: start: 20190222

REACTIONS (3)
  - Intentional product misuse [Unknown]
  - Product dose omission [Unknown]
  - Insulin-like growth factor increased [Unknown]
